FAERS Safety Report 10253496 (Version 1)
Quarter: 2014Q2

REPORT INFORMATION
  Report Type: Spontaneous
  Country: US (occurrence: US)
  Receive Date: 20140623
  Receipt Date: 20140623
  Transmission Date: 20141212
  Serious: Yes (Death)
  Sender: FDA-Public Use
  Company Number: PHEH2014US012491

PATIENT
  Age: 14 Year
  Sex: Male

DRUGS (1)
  1. RITALIN [Suspect]
     Dosage: UNK UKN, UNK

REACTIONS (2)
  - Myocardial ischaemia [Fatal]
  - Coronary artery insufficiency [Fatal]
